FAERS Safety Report 9014246 (Version 1)
Quarter: 2013Q1

REPORT INFORMATION
  Report Type: Report from Study
  Country: US (occurrence: US)
  Receive Date: 20130115
  Receipt Date: 20130115
  Transmission Date: 20140127
  Serious: Yes (Life-Threatening, Hospitalization)
  Sender: FDA-Public Use
  Company Number: US-ACTELION-A-NJ2012-73902

PATIENT
  Age: 61 Year
  Sex: Female

DRUGS (2)
  1. TRACLEER [Suspect]
     Indication: PULMONARY HYPERTENSION
     Dosage: UNK
     Route: 048
     Dates: end: 201211
  2. TRACLEER [Suspect]
     Dosage: UNK
     Route: 048
     Dates: start: 2012, end: 20121213

REACTIONS (9)
  - Hepatic enzyme increased [Recovered/Resolved]
  - Vomiting [Recovered/Resolved]
  - Loss of consciousness [Recovered/Resolved]
  - Pulmonary embolism [Unknown]
  - Endarterectomy [Unknown]
  - Atrial fibrillation [Recovered/Resolved]
  - Atrial flutter [Unknown]
  - Cardioversion [Unknown]
  - Heart rate increased [Unknown]
